FAERS Safety Report 9310425 (Version 3)
Quarter: 2013Q3

REPORT INFORMATION
  Report Type: Report from Study
  Country: US (occurrence: US)
  Receive Date: 20130527
  Receipt Date: 20130719
  Transmission Date: 20140515
  Serious: Yes (Other)
  Sender: FDA-Public Use
  Company Number: PHEH2013US011517

PATIENT
  Age: 58 Year
  Sex: Female

DRUGS (1)
  1. TASIGNA [Suspect]
     Indication: NEOPLASM MALIGNANT
     Dosage: 600 MG, DAILY
     Route: 048
     Dates: start: 20110429

REACTIONS (3)
  - Hypothyroidism [Unknown]
  - Thyroid disorder [Unknown]
  - Nasopharyngitis [Unknown]
